FAERS Safety Report 23342223 (Version 1)
Quarter: 2023Q4

REPORT INFORMATION
  Report Type: Spontaneous
  Country: CN (occurrence: CN)
  Receive Date: 20231227
  Receipt Date: 20231227
  Transmission Date: 20240110
  Serious: Yes (Other)
  Sender: FDA-Public Use
  Company Number: CN-PFIZER INC-PV202300204992

PATIENT
  Age: 4 Year
  Sex: Female
  Weight: 17 kg

DRUGS (6)
  1. METHOTREXATE SODIUM [Suspect]
     Active Substance: METHOTREXATE SODIUM
     Indication: Chemotherapy
     Dosage: 12 MG, 1X/DAY
     Route: 037
     Dates: start: 20231207, end: 20231207
  2. CYTARABINE [Suspect]
     Active Substance: CYTARABINE
     Indication: Chemotherapy
     Dosage: 0.052 G, 1X/DAY
     Route: 042
     Dates: start: 20231207, end: 20231210
  3. CYTARABINE [Suspect]
     Active Substance: CYTARABINE
     Dosage: 0.03 G, 1X/DAY
     Route: 037
     Dates: start: 20231207, end: 20231207
  4. SODIUM CHLORIDE [Concomitant]
     Active Substance: SODIUM CHLORIDE
     Indication: Vehicle solution use
     Dosage: 20 ML, 1X/DAY
     Route: 042
     Dates: start: 20231207, end: 20231210
  5. SODIUM CHLORIDE [Concomitant]
     Active Substance: SODIUM CHLORIDE
     Dosage: 6 ML, 1X/DAY
     Route: 037
     Dates: start: 20231207, end: 20231207
  6. DEXAMETHASONE SODIUM PHOSPHATE [Concomitant]
     Active Substance: DEXAMETHASONE PHOSPHATE\DEXAMETHASONE SODIUM PHOSPHATE
     Indication: Chemotherapy
     Dosage: 5 MG, 1X/DAY
     Route: 037
     Dates: start: 20231207, end: 20231207

REACTIONS (1)
  - Myelosuppression [Unknown]

NARRATIVE: CASE EVENT DATE: 20231210
